FAERS Safety Report 20731059 (Version 1)
Quarter: 2022Q2

REPORT INFORMATION
  Report Type: Spontaneous
  Country: US (occurrence: None)
  Receive Date: 20220420
  Receipt Date: 20220420
  Transmission Date: 20220721
  Serious: Yes (Disabling)
  Sender: FDA-Public Use
  Company Number: None

PATIENT
  Age: 34 Year
  Sex: Female
  Weight: 63 kg

DRUGS (4)
  1. METRONIDAZOLE [Suspect]
     Active Substance: METRONIDAZOLE
     Indication: Bacterial vaginosis
     Dates: start: 20220402, end: 20220404
  2. HERBALS\TURMERIC [Concomitant]
     Active Substance: HERBALS\TURMERIC
  3. PROBIOTICS NOS [Concomitant]
     Active Substance: PROBIOTICS NOS
  4. QUERCITIN [Concomitant]

REACTIONS (5)
  - Pain in extremity [None]
  - Paraesthesia [None]
  - Muscular weakness [None]
  - Muscle spasms [None]
  - Nerve injury [None]

NARRATIVE: CASE EVENT DATE: 20220404
